FAERS Safety Report 18045002 (Version 3)
Quarter: 2020Q3

REPORT INFORMATION
  Report Type: Report from Study
  Country: IT (occurrence: IT)
  Receive Date: 20200720
  Receipt Date: 20200901
  Transmission Date: 20201103
  Serious: Yes (Hospitalization)
  Sender: FDA-Public Use
  Company Number: IT-PFIZER INC-2020274650

PATIENT
  Age: 66 Year
  Sex: Female

DRUGS (8)
  1. LORAZEPAM. [Suspect]
     Active Substance: LORAZEPAM
     Dosage: 100 MG, TOTAL
     Route: 048
     Dates: start: 20200603, end: 20200603
  2. TRIMIPRAMINE [Suspect]
     Active Substance: TRIMIPRAMINE
     Dosage: 800 MG, TOTAL
     Route: 048
     Dates: start: 20200603, end: 20200603
  3. ABILIFY [Concomitant]
     Active Substance: ARIPIPRAZOLE
     Indication: BIPOLAR DISORDER
     Dosage: 10 MG
     Route: 048
  4. FLURAZEPAM MONOHYDROCHLORIDE [Suspect]
     Active Substance: FLURAZEPAM MONOHYDROCHLORIDE
     Dosage: 270 MG, TOTAL
     Route: 048
     Dates: start: 20200603, end: 20200603
  5. LORMETAZEPAM [Suspect]
     Active Substance: LORMETAZEPAM
     Dosage: 50 MG, TOTAL
     Route: 048
     Dates: start: 20200603, end: 20200603
  6. LITHIUM. [Suspect]
     Active Substance: LITHIUM
     Dosage: 41.5 MG, TOTAL
     Route: 048
     Dates: start: 20200603, end: 20200603
  7. CLONAZEPAM. [Suspect]
     Active Substance: CLONAZEPAM
     Dosage: 25 MG, TOTAL
     Route: 048
     Dates: start: 20200603, end: 20200603
  8. QUETIAPINE FUMARATE. [Suspect]
     Active Substance: QUETIAPINE FUMARATE
     Dosage: 6900 MG, SINGLE
     Route: 048
     Dates: start: 20200603, end: 20200603

REACTIONS (3)
  - Depressed level of consciousness [Recovering/Resolving]
  - Drug abuse [Recovering/Resolving]
  - Loss of consciousness [Recovering/Resolving]

NARRATIVE: CASE EVENT DATE: 20200603
